FAERS Safety Report 22620322 (Version 1)
Quarter: 2023Q2

REPORT INFORMATION
  Report Type: Report from Study
  Country: JP (occurrence: JP)
  Receive Date: 20230620
  Receipt Date: 20230620
  Transmission Date: 20230722
  Serious: Yes (Hospitalization)
  Sender: FDA-Public Use
  Company Number: JP-TEVA-2023-JP-2898545

PATIENT
  Sex: Female

DRUGS (2)
  1. IRINOTECAN [Suspect]
     Active Substance: IRINOTECAN
     Indication: Cervix carcinoma recurrent
     Dosage: ON DAY 1 AND 8
     Route: 065
  2. NEDAPLATIN [Suspect]
     Active Substance: NEDAPLATIN
     Indication: Cervix carcinoma recurrent
     Dosage: ON DAY 1
     Route: 065

REACTIONS (3)
  - Septic shock [Unknown]
  - Neutropenic colitis [Unknown]
  - Candida infection [Unknown]
